FAERS Safety Report 7324662-4 (Version None)
Quarter: 2011Q1

REPORT INFORMATION
  Report Type: 
  Country: None (occurrence: None)
  Receive Date: 20110301
  Receipt Date: 20110225
  Transmission Date: 20110831
  Serious: Yes (Hospitalization, Disabling, Congenital Anomaly, Other)
  Sender: FDA-Public Use
  Company Number: GXKR2011DE01055

PATIENT
  Sex: Female
  Weight: 1.65 kg

DRUGS (2)
  1. CARBAMAZEPINE [Suspect]
     Dosage: UNK MG, QD
     Route: 064
  2. VALPROIC ACID [Suspect]
     Dosage: UNK MG, QD
     Route: 064

REACTIONS (11)
  - DEAFNESS CONGENITAL [None]
  - PREMATURE BABY [None]
  - ANAEMIA NEONATAL [None]
  - NEONATAL HYPOTENSION [None]
  - DRUG EXPOSURE DURING PREGNANCY [None]
  - HYPOGLYCAEMIA NEONATAL [None]
  - PULMONARY VALVE STENOSIS CONGENITAL [None]
  - MICROCEPHALY [None]
  - ARNOLD-CHIARI MALFORMATION [None]
  - NEONATAL RESPIRATORY DISTRESS SYNDROME [None]
  - MENINGOMYELOCELE [None]
